FAERS Safety Report 24535946 (Version 1)
Quarter: 2024Q4

REPORT INFORMATION
  Report Type: Spontaneous
  Country: AR (occurrence: AR)
  Receive Date: 20241022
  Receipt Date: 20241022
  Transmission Date: 20250114
  Serious: Yes (Other)
  Sender: MERCK
  Company Number: AR-009507513-2410ARG009458

PATIENT
  Age: 84 Year
  Sex: Male

DRUGS (1)
  1. KEYTRUDA [Suspect]
     Active Substance: PEMBROLIZUMAB
     Indication: Bladder cancer stage IV
     Dosage: UNK UNK, CYCLICAL

REACTIONS (3)
  - Myasthenic syndrome [Unknown]
  - Cardiac pacemaker insertion [Unknown]
  - Myositis [Unknown]
